FAERS Safety Report 6044824-6 (Version None)
Quarter: 2009Q1

REPORT INFORMATION
  Report Type: 
  Country: None (occurrence: None)
  Receive Date: 20090120
  Receipt Date: 20090107
  Transmission Date: 20090719
  Serious: Yes (Hospitalization, Other)
  Sender: FDA-Public Use
  Company Number: US-AMGEN-US326898

PATIENT
  Sex: Female
  Weight: 60 kg

DRUGS (17)
  1. NPLATE [Suspect]
     Indication: IDIOPATHIC THROMBOCYTOPENIC PURPURA
     Route: 042
     Dates: start: 20081023
  2. MACROBID [Concomitant]
     Route: 065
  3. METOPROLOL TARTRATE [Concomitant]
     Route: 065
  4. CALCIUM [Concomitant]
     Route: 065
  5. GLUCOSAMINE [Concomitant]
     Route: 065
  6. ESTRADIOL [Concomitant]
     Route: 065
  7. MULTI-VITAMINS [Concomitant]
     Route: 065
  8. LISINOPRIL [Concomitant]
     Route: 065
  9. FLAX SEED OIL [Concomitant]
     Route: 065
  10. VITAMIN B COMPLEX CAP [Concomitant]
     Route: 065
  11. PSYLLIUM [Concomitant]
     Route: 065
  12. UNSPECIFIED NUTRITIONAL SUPPLEMENT [Concomitant]
     Route: 065
  13. UNSPECIFIED NUTRITIONAL SUPPLEMENT [Concomitant]
     Route: 065
  14. TYLENOL (CAPLET) [Concomitant]
     Route: 065
  15. VICODIN [Concomitant]
     Route: 065
  16. PREDNISONE [Concomitant]
  17. PREDNISONE [Concomitant]

REACTIONS (9)
  - ARTHRALGIA [None]
  - ASTHENIA [None]
  - EMBOLIC STROKE [None]
  - LEFT ATRIAL DILATATION [None]
  - LEFT VENTRICULAR HYPERTROPHY [None]
  - MUSCULOSKELETAL PAIN [None]
  - MYALGIA [None]
  - PULMONARY HYPERTENSION [None]
  - THROMBOCYTOPENIA [None]
